FAERS Safety Report 5885043-3 (Version None)
Quarter: 2008Q3

REPORT INFORMATION
  Report Type: 
  Country: None (occurrence: None)
  Receive Date: 20080916
  Receipt Date: 20080421
  Transmission Date: 20090109
  Serious: No
  Sender: FDA-Public Use
  Company Number: US-TYCO HEALTHCARE/MALLINCKRODT-T200800711

PATIENT

DRUGS (1)
  1. MD-GASTROVIEW [Suspect]
     Dosage: 200 ML, SINGLE
     Route: 042
     Dates: start: 20080414, end: 20080414

REACTIONS (2)
  - INCORRECT ROUTE OF DRUG ADMINISTRATION [None]
  - MEDICATION ERROR [None]
